FAERS Safety Report 23951454 (Version 3)
Quarter: 2024Q4

REPORT INFORMATION
  Report Type: Report from Study
  Country: CA (occurrence: CA)
  Receive Date: 20240607
  Receipt Date: 20241030
  Transmission Date: 20250114
  Serious: Yes (Other)
  Sender: SANDOZ
  Company Number: CA-002147023-NVSC2021CA122000

PATIENT
  Age: 60 Year
  Sex: Female

DRUGS (2)
  1. CORTISONE [Suspect]
     Active Substance: CORTISONE
     Indication: Product used for unknown indication
     Dosage: UNK
     Route: 065
  2. HYRIMOZ [Suspect]
     Active Substance: ADALIMUMAB-ADAZ
     Indication: Rheumatoid arthritis
     Dosage: 40MG SC Q2SEMAINES;EVERY TWO WEEKS
     Route: 058
     Dates: start: 20210526, end: 20240422

REACTIONS (10)
  - Metastatic lymphoma [Unknown]
  - Breast cancer stage II [Unknown]
  - Hypoaesthesia [Unknown]
  - Musculoskeletal discomfort [Unknown]
  - Arthralgia [Recovering/Resolving]
  - Neck pain [Recovering/Resolving]
  - Injection site haemorrhage [Unknown]
  - Pain in extremity [Unknown]
  - Symptom recurrence [Unknown]
  - Swelling [Unknown]

NARRATIVE: CASE EVENT DATE: 20210526
